FAERS Safety Report 9049524 (Version 1)
Quarter: 2013Q1

REPORT INFORMATION
  Report Type: Spontaneous
  Country: US (occurrence: US)
  Receive Date: 20130205
  Receipt Date: 20130205
  Transmission Date: 20140127
  Serious: Yes (Other)
  Sender: FDA-Public Use
  Company Number: US-WATSON-2013-00101

PATIENT
  Sex: 0

DRUGS (6)
  1. BUPROPION HYDROCHLORIDE XL [Suspect]
     Indication: DEPRESSION
     Dosage: 150MG, 3 TABLETS EVERY DAY
     Route: 048
     Dates: start: 201206
  2. BUPROPION HYDROCHLORIDE XL [Suspect]
     Indication: ANXIETY
  3. BUPROPION HYDROCHLORIDE XL [Suspect]
     Indication: BORDERLINE PERSONALITY DISORDER
  4. CLONAZEPAM [Concomitant]
     Indication: ANXIETY
     Dosage: UNK, AS NEEDED
     Route: 048
  5. LAMICTAL [Concomitant]
     Indication: ANXIETY
     Dosage: UNK
     Route: 048
  6. LAMICTAL [Concomitant]
     Indication: DEPRESSION

REACTIONS (3)
  - Grand mal convulsion [Recovered/Resolved]
  - Cyanosis [Recovered/Resolved]
  - Long QT syndrome [Not Recovered/Not Resolved]
